FAERS Safety Report 4268661-8 (Version None)
Quarter: 2004Q1

REPORT INFORMATION
  Report Type: 
  Country: None (occurrence: None)
  Receive Date: 20040108
  Receipt Date: 20031230
  Transmission Date: 20041129
  Serious: Yes (Hospitalization)
  Sender: FDA-Public Use
  Company Number: A035337

PATIENT
  Age: 5 Year
  Sex: Male
  Weight: 20 kg

DRUGS (4)
  1. ZITHROMAX [Suspect]
     Indication: BRONCHITIS
     Dosage: 210 MG (DAILY), ORAL
     Route: 048
     Dates: start: 20001010, end: 20001012
  2. PROCATEROL HYDROCHLORIDE (PROCATEROL HYDROCHLORIDE) [Concomitant]
  3. DEXTROMETORPHAN HYDROBROMIDE (DEXTROMETHORPHAN HYDROBROMIDE) [Concomitant]
  4. CHLORPHENIRAMINE MALEATE [Concomitant]

REACTIONS (20)
  - BLISTER [None]
  - BLOOD FIBRINOGEN INCREASED [None]
  - C-REACTIVE PROTEIN INCREASED [None]
  - CLOSTRIDIUM COLITIS [None]
  - CONJUNCTIVAL HYPERAEMIA [None]
  - CORNEAL EROSION [None]
  - EYELID OEDEMA [None]
  - FACE OEDEMA [None]
  - HAEMOGLOBIN DECREASED [None]
  - INFECTION [None]
  - LIP PAIN [None]
  - PLATELET COUNT INCREASED [None]
  - PYREXIA [None]
  - SCROTAL ULCER [None]
  - SKIN TEST POSITIVE [None]
  - STEVENS-JOHNSON SYNDROME [None]
  - UPPER RESPIRATORY TRACT INFECTION [None]
  - VARICELLA [None]
  - VISUAL DISTURBANCE [None]
  - WHITE BLOOD CELL COUNT INCREASED [None]
